FAERS Safety Report 18997017 (Version 1)
Quarter: 2021Q1

REPORT INFORMATION
  Report Type: Spontaneous
  Country: US (occurrence: US)
  Receive Date: 20210311
  Receipt Date: 20210311
  Transmission Date: 20210420
  Serious: No
  Sender: FDA-Public Use
  Company Number: NVSC2021US056084

PATIENT
  Age: 72 Year
  Sex: Female

DRUGS (1)
  1. VOLTAREN EMULGEL [Suspect]
     Active Substance: DICLOFENAC DIETHYLAMINE
     Indication: ARTHRITIS
     Dosage: UNK
     Route: 065

REACTIONS (5)
  - Condition aggravated [Unknown]
  - Product use issue [Unknown]
  - Skin exfoliation [Unknown]
  - Inappropriate schedule of product administration [Unknown]
  - Wrong technique in product usage process [Unknown]
